FAERS Safety Report 15421997 (Version 1)
Quarter: 2018Q3

REPORT INFORMATION
  Report Type: Spontaneous
  Country: US (occurrence: US)
  Receive Date: 20180924
  Receipt Date: 20180924
  Transmission Date: 20181010
  Serious: No
  Sender: FDA-Public Use
  Company Number: US-ALLERGAN-1841764US

PATIENT
  Age: 71 Year
  Weight: 64.4 kg

DRUGS (2)
  1. LINZESS [Suspect]
     Active Substance: LINACLOTIDE
     Dosage: 290 ?G, UNK
     Route: 048
     Dates: start: 201807
  2. LINZESS [Suspect]
     Active Substance: LINACLOTIDE
     Indication: CONSTIPATION
     Dosage: 145 ?G, UNKNOWN
     Route: 048
     Dates: start: 201808, end: 201808

REACTIONS (3)
  - Nausea [Unknown]
  - Diarrhoea [Recovered/Resolved]
  - Off label use [Unknown]
